FAERS Safety Report 9485352 (Version 19)
Quarter: 2015Q3

REPORT INFORMATION
  Report Type: Spontaneous
  Country: CA (occurrence: CA)
  Receive Date: 20130828
  Receipt Date: 20150723
  Transmission Date: 20151125
  Serious: Yes (Hospitalization, Other)
  Sender: FDA-Public Use
  Company Number: CA-ROCHE-1267612

PATIENT
  Age: 29 Year
  Sex: Female

DRUGS (7)
  1. PANTOLOC [Concomitant]
     Active Substance: PANTOPRAZOLE SODIUM
  2. ASMANEX [Concomitant]
     Active Substance: MOMETASONE FUROATE
  3. XOLAIR [Suspect]
     Active Substance: OMALIZUMAB
     Indication: ASTHMA
     Route: 058
     Dates: start: 20130813
  4. NAPROXEN. [Concomitant]
     Active Substance: NAPROXEN
  5. MOMETASONE [Concomitant]
     Active Substance: MOMETASONE
  6. VENTOLIN [Concomitant]
     Active Substance: ALBUTEROL SULFATE
  7. ZENHALE [Concomitant]
     Active Substance: FORMOTEROL FUMARATE\MOMETASONE FUROATE

REACTIONS (27)
  - Lower respiratory tract infection [Recovered/Resolved]
  - Head injury [Unknown]
  - Pain [Unknown]
  - Vertigo [Not Recovered/Not Resolved]
  - Influenza [Unknown]
  - Pyrexia [Unknown]
  - Fall [Unknown]
  - Loss of consciousness [Unknown]
  - Grip strength decreased [Unknown]
  - Malaise [Not Recovered/Not Resolved]
  - Breast abscess [Unknown]
  - Skin infection [Unknown]
  - Wound infection [Unknown]
  - Nausea [Unknown]
  - Gastric infection [Unknown]
  - Cough [Unknown]
  - Dyspnoea [Unknown]
  - Drop attacks [Unknown]
  - Anaesthetic complication [Unknown]
  - Asthma [Unknown]
  - Concussion [Unknown]
  - General physical health deterioration [Unknown]
  - Rib fracture [Unknown]
  - Wrist fracture [Unknown]
  - Middle insomnia [Unknown]
  - Concomitant disease aggravated [Unknown]
  - Meniere^s disease [Unknown]

NARRATIVE: CASE EVENT DATE: 20130822
